FAERS Safety Report 7012052-3 (Version None)
Quarter: 2010Q3

REPORT INFORMATION
  Report Type: 
  Country: None (occurrence: None)
  Receive Date: 20100924
  Receipt Date: 20100917
  Transmission Date: 20110219
  Serious: Yes (Life-Threatening, Hospitalization, Other)
  Sender: FDA-Public Use
  Company Number: US-ELI_LILLY_AND_COMPANY-US201009005206

PATIENT
  Sex: Male
  Weight: 109 kg

DRUGS (3)
  1. PRASUGREL HYDROCHLORIDE [Suspect]
     Indication: ACUTE CORONARY SYNDROME
     Dosage: 10 MG, DAILY (1/D)
  2. ASPIRIN [Concomitant]
     Dosage: 325 MG, DAILY (1/D)
  3. LASIX [Concomitant]
     Indication: HYPERTENSION
     Dosage: 80 MG, 2/D
     Route: 048

REACTIONS (1)
  - ACUTE MYOCARDIAL INFARCTION [None]
